FAERS Safety Report 9986269 (Version 5)
Quarter: 2014Q1

REPORT INFORMATION
  Report Type: Report from Study
  Country: AT (occurrence: AT)
  Receive Date: 20140307
  Receipt Date: 20140331
  Transmission Date: 20141002
  Serious: Yes (Death, Hospitalization)
  Sender: FDA-Public Use
  Company Number: AT-B.I. PHARMACEUTICALS,INC./RIDGEFIELD-2012-AP-00683AP

PATIENT
  Age: 55 Year
  Sex: Male
  Weight: 47 kg

DRUGS (6)
  1. BIBW 2992 [Suspect]
     Indication: SQUAMOUS CELL CARCINOMA OF HEAD AND NECK
     Dosage: 40 MG
     Route: 048
     Dates: start: 20120807, end: 20120815
  2. BIBW 2992 [Suspect]
     Dosage: 30 MG
     Route: 048
     Dates: start: 20120903, end: 20120912
  3. LYRICA [Concomitant]
     Indication: DEPRESSION
     Dosage: 75 MG
     Route: 048
  4. PASPERTIN [Concomitant]
     Indication: NAUSEA
     Dosage: 20 GGT
     Route: 048
  5. MORAPID [Concomitant]
     Indication: PAIN
     Dosage: AS REQUIRED
     Route: 048
  6. MOVICOL [Concomitant]
     Indication: CONSTIPATION
     Dosage: DAILY DOSE: ON DEMAND
     Route: 048

REACTIONS (11)
  - Death [Fatal]
  - Palmar-plantar erythrodysaesthesia syndrome [Recovered/Resolved]
  - Diarrhoea [Recovered/Resolved]
  - Stomatitis [Recovered/Resolved]
  - Gastrooesophageal reflux disease [Recovered/Resolved]
  - Nausea [Recovered/Resolved]
  - Decreased appetite [Recovered/Resolved]
  - Oesophageal stenosis [Unknown]
  - Mucosal necrosis [Unknown]
  - Rash [Recovered/Resolved]
  - Dysphagia [Recovered/Resolved]
